FAERS Safety Report 14623525 (Version 1)
Quarter: 2018Q1

REPORT INFORMATION
  Report Type: Spontaneous
  Country: PL (occurrence: PL)
  Receive Date: 20180312
  Receipt Date: 20180312
  Transmission Date: 20180509
  Serious: Yes (Death, Hospitalization)
  Sender: FDA-Public Use
  Company Number: PL-AUROBINDO-AUR-APL-2018-012944

PATIENT
  Age: 52 Year
  Sex: Female

DRUGS (7)
  1. VANCOMYCIN [Concomitant]
     Active Substance: VANCOMYCIN
     Route: 042
  2. RIFAMPICIN [Suspect]
     Active Substance: RIFAMPIN
     Indication: KLEBSIELLA INFECTION
     Route: 048
     Dates: start: 20160317
  3. MEROPENEM. [Suspect]
     Active Substance: MEROPENEM
     Indication: PNEUMONIA STAPHYLOCOCCAL
     Route: 042
  4. LEVOFLOXACIN. [Suspect]
     Active Substance: LEVOFLOXACIN
     Indication: PNEUMONIA STAPHYLOCOCCAL
     Route: 042
  5. MEROPENEM. [Suspect]
     Active Substance: MEROPENEM
     Route: 042
  6. COLISTIN [Suspect]
     Active Substance: COLISTIN
     Indication: KLEBSIELLA INFECTION
     Dosage: IN NEBULIZATION DOSE:1000000 UNIT(S) (4)
     Dates: start: 20160317
  7. COLISTIN [Suspect]
     Active Substance: COLISTIN
     Dosage: 4X2 MILLION IV UNITS AND 4X1 MILLION UNITS IN NEBULIZATION DOSE:2000000 UNIT(S) (4)
     Route: 042
     Dates: start: 20160317

REACTIONS (11)
  - Multiple organ dysfunction syndrome [Fatal]
  - Respiratory acidosis [Fatal]
  - Drug resistance [Unknown]
  - Klebsiella infection [Fatal]
  - Oedema peripheral [Fatal]
  - Respiratory tract infection [Fatal]
  - Anuria [Fatal]
  - Renal failure [Fatal]
  - Electrolyte imbalance [Fatal]
  - Drug ineffective [Unknown]
  - Diarrhoea [Fatal]

NARRATIVE: CASE EVENT DATE: 201603
